FAERS Safety Report 24871587 (Version 2)
Quarter: 2025Q1

REPORT INFORMATION
  Report Type: Report from Study
  Country: US (occurrence: US)
  Receive Date: 20250122
  Receipt Date: 20250320
  Transmission Date: 20250408
  Serious: Yes (Hospitalization)
  Sender: SUNOVION
  Company Number: US-SMPA-2025SPA000270AA

PATIENT

DRUGS (2)
  1. RETHYMIC [Suspect]
     Active Substance: ALLOGENIC THYMOCYTE-DEPLETED THYMUS TISSUE-AGDC
     Indication: DiGeorge^s syndrome
     Route: 050
     Dates: start: 20241125, end: 20241125
  2. Immunoglobulin [Concomitant]
     Route: 065
     Dates: start: 202405

REACTIONS (3)
  - Staphylococcal bacteraemia [Recovered/Resolved]
  - Serratia infection [Recovered/Resolved]
  - Enterococcal infection [Recovered/Resolved]

NARRATIVE: CASE EVENT DATE: 20241209
